FAERS Safety Report 17885960 (Version 1)
Quarter: 2020Q2

REPORT INFORMATION
  Report Type: Spontaneous
  Country: DK (occurrence: DK)
  Receive Date: 20200611
  Receipt Date: 20200611
  Transmission Date: 20200714
  Serious: Yes (Other)
  Sender: FDA-Public Use
  Company Number: DK-BAXTER-2020BAX011520

PATIENT
  Age: 50 Year
  Sex: Female

DRUGS (2)
  1. EPIRUBICIN [Suspect]
     Active Substance: EPIRUBICIN
     Indication: BREAST CANCER
     Dosage: DOSE: NOT SPECIFIED STRENGTH: NOT SPECIFIED, 5MAR2015: DOSE REDUCED 2JUN2017: PAUSED
     Route: 065
     Dates: start: 20141204
  2. SENDOXAN [Suspect]
     Active Substance: CYCLOPHOSPHAMIDE
     Indication: BREAST CANCER
     Dosage: DOSE: NOT SPECIFIED STRENGTH: NOT SPECIFIED, 5MAR2015: LOWERED DOSE. PAUSED 2JUN2017
     Route: 065
     Dates: start: 20141204

REACTIONS (13)
  - Nail disorder [Recovered/Resolved]
  - Nausea [Recovered/Resolved]
  - Pain [Not Recovered/Not Resolved]
  - Rash [Recovered/Resolved]
  - Fatigue [Recovered/Resolved]
  - Sensory disturbance [Recovered/Resolved]
  - Headache [Recovered/Resolved]
  - Depression [Not Recovered/Not Resolved]
  - Arthralgia [Unknown]
  - Cardiac failure [Unknown]
  - Mental disorder [Not Recovered/Not Resolved]
  - Vomiting [Recovered/Resolved]
  - Myalgia [Unknown]

NARRATIVE: CASE EVENT DATE: 2015
